FAERS Safety Report 4500826-X (Version None)
Quarter: 2004Q4

REPORT INFORMATION
  Report Type: 
  Country: None (occurrence: None)
  Receive Date: 20041112
  Receipt Date: 20041102
  Transmission Date: 20050328
  Serious: No
  Sender: FDA-Public Use
  Company Number: 2004CG02126

PATIENT
  Age: 76 Year
  Sex: Female
  Weight: 59 kg

DRUGS (1)
  1. CRESTOR [Suspect]
     Indication: HYPERCHOLESTEROLAEMIA
     Dosage: 10 MG DAILY PO
     Route: 048
     Dates: start: 20040520, end: 20040601

REACTIONS (4)
  - POLYMYALGIA RHEUMATICA [None]
  - PULMONARY EMBOLISM [None]
  - PYREXIA [None]
  - RENAL CELL CARCINOMA STAGE UNSPECIFIED [None]
